FAERS Safety Report 5415380-8 (Version None)
Quarter: 2007Q3

REPORT INFORMATION
  Report Type: 
  Country: None (occurrence: None)
  Receive Date: 20070813
  Receipt Date: 20070813
  Transmission Date: 20080115
  Serious: Yes (Hospitalization, Other)
  Sender: FDA-Public Use
  Company Number: None

PATIENT
  Age: 84 Year
  Sex: Female

DRUGS (1)
  1. BACTRIM DS [Suspect]
     Dosage: DS PO BID
     Route: 048
     Dates: start: 20070624, end: 20070626

REACTIONS (4)
  - GENERALISED OEDEMA [None]
  - HYPOTENSION [None]
  - PYREXIA [None]
  - RASH [None]
